FAERS Safety Report 20647821 (Version 1)
Quarter: 2022Q1

REPORT INFORMATION
  Report Type: Report from Study
  Country: US (occurrence: US)
  Receive Date: 20220329
  Receipt Date: 20220329
  Transmission Date: 20220423
  Serious: Yes (Other)
  Sender: FDA-Public Use
  Company Number: US-JNJFOC-20220350168

PATIENT
  Sex: Male

DRUGS (1)
  1. INVEGA [Suspect]
     Active Substance: PALIPERIDONE
     Indication: Product used for unknown indication
     Route: 048

REACTIONS (9)
  - Erectile dysfunction [Unknown]
  - Confusional state [Unknown]
  - Tremor [Unknown]
  - Asthenia [Unknown]
  - Constipation [Unknown]
  - Loss of libido [Unknown]
  - Pyrexia [Unknown]
  - Abulia [Unknown]
  - Dyskinesia [Unknown]
